FAERS Safety Report 14793741 (Version 2)
Quarter: 2019Q2

REPORT INFORMATION
  Report Type: Report from Study
  Country: CA (occurrence: CA)
  Receive Date: 20180423
  Receipt Date: 20190612
  Transmission Date: 20190711
  Serious: Yes (Other)
  Sender: FDA-Public Use
  Company Number: CA-GLAXOSMITHKLINE-CA2018GSK067794

PATIENT
  Sex: Male

DRUGS (10)
  1. SPORANOX [Suspect]
     Active Substance: ITRACONAZOLE
     Dosage: 200 MG, QD
  2. SYMBICORT [Suspect]
     Active Substance: BUDESONIDE\FORMOTEROL FUMARATE DIHYDRATE
     Indication: PRODUCT USED FOR UNKNOWN INDICATION
     Dosage: 2 PUFF(S), TID
  3. SPORANOX [Suspect]
     Active Substance: ITRACONAZOLE
     Indication: PRODUCT USED FOR UNKNOWN INDICATION
     Dosage: 100 MG, BID
  4. SPORANOX [Suspect]
     Active Substance: ITRACONAZOLE
     Dosage: 100 MG, TID
  5. CITALOPRAM [Suspect]
     Active Substance: CITALOPRAM HYDROBROMIDE
     Indication: PRODUCT USED FOR UNKNOWN INDICATION
     Dosage: 20 MG, QD
  6. PREDNISONE. [Suspect]
     Active Substance: PREDNISONE
     Indication: PRODUCT USED FOR UNKNOWN INDICATION
     Dosage: 40 MG, QD
  7. RABEPRAZOLE [Suspect]
     Active Substance: RABEPRAZOLE
     Indication: PRODUCT USED FOR UNKNOWN INDICATION
     Dosage: UNK
  8. REACTINE (CETIRIZINE HYDROCHLORIDE) [Suspect]
     Active Substance: CETIRIZINE HYDROCHLORIDE
     Indication: PRODUCT USED FOR UNKNOWN INDICATION
     Dosage: UNK
  9. NUCALA [Suspect]
     Active Substance: MEPOLIZUMAB
     Indication: ASTHMA
     Dosage: 100 MG, Z
     Route: 042
     Dates: start: 20190418
  10. SALBUTAMOL SULPHATE [Suspect]
     Active Substance: ALBUTEROL SULFATE
     Indication: ASTHMA
     Dosage: UNK

REACTIONS (19)
  - Rash [Unknown]
  - Forced expiratory volume [Unknown]
  - Secretion discharge [Unknown]
  - Bronchopulmonary aspergillosis allergic [Unknown]
  - Chest discomfort [Recovering/Resolving]
  - Parathyroid gland enlargement [Unknown]
  - Mycobacterial infection [Unknown]
  - Sinusitis [Unknown]
  - Upper respiratory fungal infection [Unknown]
  - Cough [Unknown]
  - Chest pain [Unknown]
  - Haemoptysis [Unknown]
  - Lymphadenopathy [Unknown]
  - Weight increased [Unknown]
  - Lung disorder [Unknown]
  - Folliculitis [Unknown]
  - Hyperventilation [Unknown]
  - Bronchial disorder [Unknown]
  - Anxiety [Unknown]
